FAERS Safety Report 17778390 (Version 1)
Quarter: 2020Q2

REPORT INFORMATION
  Report Type: Spontaneous
  Country: US (occurrence: US)
  Receive Date: 20200513
  Receipt Date: 20200513
  Transmission Date: 20200714
  Serious: No
  Sender: FDA-Public Use
  Company Number: US-CIPLA LTD.-2020US02157

PATIENT

DRUGS (3)
  1. PREGABALIN. [Suspect]
     Active Substance: PREGABALIN
     Indication: FIBROMYALGIA
  2. PREGABALIN. [Suspect]
     Active Substance: PREGABALIN
     Indication: SEIZURE
  3. PREGABALIN. [Suspect]
     Active Substance: PREGABALIN
     Indication: BRAIN INJURY
     Dosage: 150 MILLIGRAM, QID (ONCE EVERY 6 HOURS)
     Route: 048
     Dates: start: 202001, end: 2020

REACTIONS (6)
  - Joint stiffness [Recovered/Resolved]
  - Peripheral swelling [Recovered/Resolved]
  - Adverse drug reaction [Recovered/Resolved]
  - Product use in unapproved indication [Unknown]
  - Product substitution issue [Unknown]
  - Off label use [Unknown]

NARRATIVE: CASE EVENT DATE: 2020
